FAERS Safety Report 8267390-3 (Version None)
Quarter: 2012Q2

REPORT INFORMATION
  Report Type: 
  Country: None (occurrence: None)
  Receive Date: 20120409
  Receipt Date: 20120403
  Transmission Date: 20120825
  Serious: Yes (Other)
  Sender: FDA-Public Use
  Company Number: PHHY2012CA009889

PATIENT
  Sex: Female
  Weight: 77.098 kg

DRUGS (2)
  1. EXTAVIA [Suspect]
     Indication: RELAPSING-REMITTING MULTIPLE SCLEROSIS
     Dosage: 4 MIU, QW3
     Route: 058
     Dates: start: 20111212
  2. TYLENOL (CAPLET) [Concomitant]
     Dosage: 650 MG, UNK
     Route: 048

REACTIONS (5)
  - NIGHT SWEATS [None]
  - FEELING OF BODY TEMPERATURE CHANGE [None]
  - NAUSEA [None]
  - MALAISE [None]
  - HYPERHIDROSIS [None]
